FAERS Safety Report 5266802-7 (Version None)
Quarter: 2007Q1

REPORT INFORMATION
  Report Type: 
  Country: None (occurrence: None)
  Receive Date: 20061213
  Receipt Date: 20021111
  Transmission Date: 20070707
  Serious: Yes (Hospitalization)
  Sender: FDA-Public Use
  Company Number: 2002UW15552

PATIENT
  Age: 77 Year
  Sex: Female

DRUGS (10)
  1. NOLVADEX [Suspect]
     Indication: BREAST CANCER
     Dosage: 20 MG DAILY PO
     Route: 048
     Dates: start: 19981103
  2. INSULIN [Concomitant]
  3. SYNTHROID [Concomitant]
  4. LIPITOR [Concomitant]
  5. VITAMIN B-12 [Concomitant]
  6. TRAZODONE HCL [Concomitant]
  7. METAMUCIL [Concomitant]
  8. RELAFEN [Concomitant]
  9. CALAN [Concomitant]
  10. QUINAGLUTE [Concomitant]

REACTIONS (1)
  - CATARACT [None]
